FAERS Safety Report 23099712 (Version 1)
Quarter: 2023Q4

REPORT INFORMATION
  Report Type: Spontaneous
  Country: US (occurrence: None)
  Receive Date: 20231023
  Receipt Date: 20231023
  Transmission Date: 20240110
  Serious: Yes (Other)
  Sender: FDA-Public Use
  Company Number: None

PATIENT
  Age: 52 Year
  Sex: Male
  Weight: 87 kg

DRUGS (3)
  1. ARCALYST [Suspect]
     Active Substance: RILONACEPT
     Dates: start: 20230908, end: 20230922
  2. ASPIRIN [Concomitant]
     Active Substance: ASPIRIN
     Dates: start: 20230501
  3. COLCHICINE [Concomitant]
     Active Substance: COLCHICINE
     Dates: start: 20230501

REACTIONS (2)
  - Tremor [None]
  - Therapy cessation [None]

NARRATIVE: CASE EVENT DATE: 20230908
